FAERS Safety Report 8169062-2 (Version None)
Quarter: 2012Q1

REPORT INFORMATION
  Report Type: 
  Country: None (occurrence: None)
  Receive Date: 20120227
  Receipt Date: 20120127
  Transmission Date: 20120608
  Serious: Yes (Life-Threatening, Hospitalization, Disabling)
  Sender: FDA-Public Use
  Company Number: GB-PFIZER INC-K201000847

PATIENT
  Age: 57 Year
  Sex: Female

DRUGS (8)
  1. BENDROFLUMETHIAZIDE [Interacting]
     Indication: HYPERTENSION
     Dosage: 2.5 MG, 1X/DAY
     Route: 048
     Dates: start: 20050101, end: 20090205
  2. MENOPACE [Concomitant]
     Dosage: UNK
  3. ALTACE [Suspect]
     Indication: HYPERTENSION
     Dosage: 2.5 MG, 1X/DAY
     Route: 048
     Dates: start: 20060101, end: 20090205
  4. CITALOPRAM [Interacting]
     Indication: DEPRESSION
     Dosage: 20 MG, 1X/DAY
     Route: 048
     Dates: start: 20090202, end: 20090205
  5. METRONIDAZOLE [Interacting]
     Indication: TOOTH DISORDER
     Dosage: 200 MG, 3X/DAY
     Route: 048
     Dates: start: 20090202, end: 20090205
  6. GARLIC [Concomitant]
     Dosage: UNK
  7. PARACETAMOL [Concomitant]
     Dosage: UNK
  8. MAGNESIUM [Concomitant]
     Dosage: UNK

REACTIONS (10)
  - OSMOTIC DEMYELINATION SYNDROME [None]
  - FEELING HOT [None]
  - MEMORY IMPAIRMENT [None]
  - NEUROLOGICAL SYMPTOM [None]
  - THIRST [None]
  - CONVULSION [None]
  - DRUG INTERACTION [None]
  - VOMITING [None]
  - GAIT DISTURBANCE [None]
  - HYPONATRAEMIA [None]
